FAERS Safety Report 6580302-3 (Version None)
Quarter: 2010Q1

REPORT INFORMATION
  Report Type: 
  Country: None (occurrence: None)
  Receive Date: 20100212
  Receipt Date: 20091102
  Transmission Date: 20100710
  Serious: No
  Sender: FDA-Public Use
  Company Number: US-ALLERGAN-0915147US

PATIENT

DRUGS (1)
  1. COMBIGAN [Suspect]
     Indication: GLAUCOMA
     Dosage: UNK
     Route: 047

REACTIONS (1)
  - IRITIS [None]
